FAERS Safety Report 5931180-4 (Version None)
Quarter: 2008Q4

REPORT INFORMATION
  Report Type: 
  Country: None (occurrence: None)
  Receive Date: 20081027
  Receipt Date: 20081021
  Transmission Date: 20090506
  Serious: Yes (Death, Other)
  Sender: FDA-Public Use
  Company Number: PHHY2008CA14130

PATIENT
  Sex: Female

DRUGS (1)
  1. CLOZARIL [Suspect]
     Dosage: UNK
     Dates: start: 20080516

REACTIONS (1)
  - BRAIN STEM HAEMORRHAGE [None]
